FAERS Safety Report 14909919 (Version 2)
Quarter: 2018Q2

REPORT INFORMATION
  Report Type: Spontaneous
  Country: PT (occurrence: PT)
  Receive Date: 20180517
  Receipt Date: 20180529
  Transmission Date: 20180711
  Serious: Yes (Hospitalization, Congenital Anomaly)
  Sender: FDA-Public Use
  Company Number: PT-MYLANLABS-2018M1032715

PATIENT
  Sex: Male
  Weight: 3.7 kg

DRUGS (1)
  1. WARFARIN [Suspect]
     Active Substance: WARFARIN
     Indication: ANTICOAGULANT THERAPY
     Dosage: 5 MG, QD
     Route: 064

REACTIONS (7)
  - Use of accessory respiratory muscles [Recovered/Resolved]
  - Hypotonia neonatal [Recovered/Resolved]
  - Ventricular septal defect [Unknown]
  - Feeding disorder [Recovered/Resolved]
  - Foetal warfarin syndrome [Unknown]
  - Respiratory distress [Recovered/Resolved]
  - Foetal exposure during pregnancy [Recovered/Resolved]
